FAERS Safety Report 6199424-4 (Version None)
Quarter: 2009Q2

REPORT INFORMATION
  Report Type: 
  Country: None (occurrence: None)
  Receive Date: 20090522
  Receipt Date: 20090511
  Transmission Date: 20091009
  Serious: Yes (Other)
  Sender: FDA-Public Use
  Company Number: US-AVENTIS-200914239US

PATIENT

DRUGS (1)
  1. GLYBURIDE [Suspect]
     Dosage: DOSE: 2.5 MG DAILY TITRATED UP TO 7.5 MG TWICE DAILY
     Route: 048

REACTIONS (4)
  - FALL [None]
  - FRACTURE [None]
  - LIMB INJURY [None]
  - MULTIPLE FRACTURES [None]
